FAERS Safety Report 8942206 (Version 1)
Quarter: 2012Q4

REPORT INFORMATION
  Report Type: Spontaneous
  Country: US (occurrence: None)
  Receive Date: 20121129
  Receipt Date: 20121129
  Transmission Date: 20130627
  Serious: No
  Sender: FDA-Public Use
  Company Number: None

PATIENT
  Age: 46 Year
  Sex: Male

DRUGS (1)
  1. NEUPOGEN [Suspect]
     Route: 058
     Dates: start: 20121124, end: 20121124

REACTIONS (5)
  - Back pain [None]
  - Insomnia [None]
  - Vomiting [None]
  - Rash [None]
  - Headache [None]
